FAERS Safety Report 14331200 (Version 1)
Quarter: 2017Q4

REPORT INFORMATION
  Report Type: Spontaneous
  Country: HU (occurrence: HU)
  Receive Date: 20171228
  Receipt Date: 20171228
  Transmission Date: 20180321
  Serious: Yes (Life-Threatening, Hospitalization)
  Sender: FDA-Public Use
  Company Number: HU-CIPLA LTD.-2017HU27259

PATIENT

DRUGS (6)
  1. MALTOFER [Concomitant]
     Active Substance: IRON POLYMALTOSE
     Dosage: 20 MG, UNK
     Route: 048
  2. ENALAPRIL HEXAL [Concomitant]
     Active Substance: ENALAPRIL
     Dosage: 2 MG, UNK
     Route: 048
  3. VIGANTOL [Concomitant]
     Active Substance: CHOLECALCIFEROL
     Dosage: 500 IU, UNK
     Route: 048
  4. DIGOXIN. [Suspect]
     Active Substance: DIGOXIN
     Dosage: UNK
     Route: 048
     Dates: start: 20171120, end: 20171123
  5. CARVEDILOL. [Suspect]
     Active Substance: CARVEDILOL
     Dosage: UNK
     Route: 048
     Dates: start: 20171120, end: 20171123
  6. VEROSPIRON [Concomitant]
     Active Substance: SPIRONOLACTONE
     Dosage: 12.5 MG, UNK
     Route: 048

REACTIONS (6)
  - Consciousness fluctuating [Recovered/Resolved]
  - Drug prescribing error [Unknown]
  - Hypoglycaemia [Recovered/Resolved]
  - Somnolence [Recovered/Resolved]
  - Bradycardia [Recovered/Resolved]
  - Overdose [Unknown]

NARRATIVE: CASE EVENT DATE: 20171123
